FAERS Safety Report 17464687 (Version 5)
Quarter: 2021Q4

REPORT INFORMATION
  Report Type: Report from Study
  Country: US (occurrence: US)
  Receive Date: 20200226
  Receipt Date: 20211026
  Transmission Date: 20220303
  Serious: Yes (Hospitalization)
  Sender: FDA-Public Use
  Company Number: NVSC2020US052683

PATIENT
  Age: 77 Year
  Sex: Female

DRUGS (1)
  1. PROMACTA [Suspect]
     Active Substance: ELTROMBOPAG OLAMINE
     Indication: Immune thrombocytopenia
     Dosage: 50 MG, QW
     Route: 048

REACTIONS (2)
  - Platelet count decreased [Unknown]
  - Product availability issue [Unknown]

NARRATIVE: CASE EVENT DATE: 20200220
